FAERS Safety Report 6918550-2 (Version None)
Quarter: 2010Q3

REPORT INFORMATION
  Report Type: 
  Country: None (occurrence: None)
  Receive Date: 20100722
  Receipt Date: 20091009
  Transmission Date: 20110219
  Serious: Yes (Hospitalization)
  Sender: FDA-Public Use
  Company Number: US-IGSA-IG600

PATIENT
  Age: 69 Year
  Sex: Female
  Weight: 72.7 kg

DRUGS (2)
  1. FLEBOGAMMA 5% DIF [Suspect]
     Indication: IDIOPATHIC THROMBOCYTOPENIC PURPURA
     Dosage: 70 G X 2 DAYS IV
     Route: 042
     Dates: start: 20080501, end: 20080502
  2. FLEBOGAMMA 5% [Suspect]

REACTIONS (2)
  - BLOOD PRESSURE INCREASED [None]
  - CHEST PAIN [None]
